FAERS Safety Report 7717650-7 (Version None)
Quarter: 2011Q3

REPORT INFORMATION
  Report Type: 
  Country: None (occurrence: None)
  Receive Date: 20110830
  Receipt Date: 20110817
  Transmission Date: 20111222
  Serious: Yes (Hospitalization, Other)
  Sender: FDA-Public Use
  Company Number: TW-RANBAXY-2011RR-47057

PATIENT
  Age: 26 Year
  Sex: Male

DRUGS (3)
  1. ZOLPIDEM [Suspect]
     Indication: PRODUCT USED FOR UNKNOWN INDICATION
     Dosage: 200-300 MG/DAY
     Route: 065
  2. OLANZAPINE [Concomitant]
     Indication: PRODUCT USED FOR UNKNOWN INDICATION
     Route: 065
  3. ZOLPIDEM [Suspect]
     Indication: SUICIDE ATTEMPT
     Dosage: 10 MG, UNK
     Route: 048

REACTIONS (9)
  - DELIRIUM [None]
  - SINUS TACHYCARDIA [None]
  - DRUG WITHDRAWAL SYNDROME [None]
  - ANXIETY [None]
  - AGITATION [None]
  - CONFUSIONAL STATE [None]
  - CHEST DISCOMFORT [None]
  - INTENTIONAL OVERDOSE [None]
  - INSOMNIA [None]
